FAERS Safety Report 4664235-5 (Version None)
Quarter: 2005Q2

REPORT INFORMATION
  Report Type: 
  Country: None (occurrence: None)
  Receive Date: 20050516
  Receipt Date: 20050516
  Transmission Date: 20051028
  Serious: Yes (Other)
  Sender: FDA-Public Use
  Company Number: None

PATIENT
  Age: 56 Year
  Sex: Female
  Weight: 83.9154 kg

DRUGS (1)
  1. CIPROFLAXACIN [Suspect]
     Indication: CONJUNCTIVITIS
     Dosage: 2 DROPS    2 HOURS   OPHTHALMIC
     Route: 047
     Dates: start: 20040728, end: 20040730

REACTIONS (1)
  - MUSCULOSKELETAL STIFFNESS [None]
